FAERS Safety Report 24028890 (Version 1)
Quarter: 2024Q2

REPORT INFORMATION
  Report Type: Spontaneous
  Country: FR (occurrence: FR)
  Receive Date: 20240628
  Receipt Date: 20240628
  Transmission Date: 20240716
  Serious: Yes (Hospitalization, Other)
  Sender: FDA-Public Use
  Company Number: FR-MYLANLABS-2024M1058050

PATIENT
  Age: 85 Year
  Sex: Male

DRUGS (1)
  1. AMIODARONE [Suspect]
     Active Substance: AMIODARONE
     Indication: Product used for unknown indication
     Dosage: UNK
     Route: 048
     Dates: start: 2024

REACTIONS (9)
  - Cor pulmonale acute [Recovering/Resolving]
  - Arrhythmia [Recovering/Resolving]
  - Hypotension [Recovering/Resolving]
  - Dyspnoea [Recovering/Resolving]
  - Haemoptysis [Recovering/Resolving]
  - Depression [Recovering/Resolving]
  - Weight decreased [Recovering/Resolving]
  - Decreased appetite [Recovering/Resolving]
  - Cough [Recovering/Resolving]
